FAERS Safety Report 5739741-2 (Version None)
Quarter: 2008Q2

REPORT INFORMATION
  Report Type: 
  Country: None (occurrence: None)
  Receive Date: 20080512
  Receipt Date: 20080512
  Transmission Date: 20081010
  Serious: Yes (Hospitalization)
  Sender: FDA-Public Use
  Company Number: None

PATIENT
  Age: 62 Year
  Sex: Female

DRUGS (2)
  1. ZALEDRONIC ACID [Suspect]
     Indication: BREAST CANCER METASTATIC
  2. ZALEDRONIC ACID [Suspect]
     Indication: HYPERCALCAEMIA

REACTIONS (2)
  - OSTEOMYELITIS [None]
  - OSTEONECROSIS [None]
